FAERS Safety Report 21403996 (Version 1)
Quarter: 2022Q4

REPORT INFORMATION
  Report Type: Spontaneous
  Country: BR (occurrence: BR)
  Receive Date: 20221003
  Receipt Date: 20221003
  Transmission Date: 20230113
  Serious: Yes (Other)
  Sender: FDA-Public Use
  Company Number: BR-TAKEDA-2022TUS068398

PATIENT
  Sex: Male
  Weight: 90 kg

DRUGS (2)
  1. LISDEXAMFETAMINE DIMESYLATE [Suspect]
     Active Substance: LISDEXAMFETAMINE DIMESYLATE
     Indication: Attention deficit hyperactivity disorder
     Dosage: UNK
     Route: 065
  2. LAMICTAL [Concomitant]
     Active Substance: LAMOTRIGINE
     Route: 065

REACTIONS (13)
  - Bipolar disorder [Unknown]
  - Drug ineffective [Unknown]
  - Injury [Unknown]
  - Feeling abnormal [Unknown]
  - Appetite disorder [Unknown]
  - Rebound effect [Unknown]
  - Anxiety disorder [Unknown]
  - Weight decreased [Unknown]
  - Treatment noncompliance [Unknown]
  - Poor quality product administered [Unknown]
  - Wrong technique in product usage process [Unknown]
  - Product physical issue [Unknown]
  - Product quality issue [Unknown]
